FAERS Safety Report 6235716-8 (Version None)
Quarter: 2009Q2

REPORT INFORMATION
  Report Type: 
  Country: None (occurrence: None)
  Receive Date: 20090616
  Receipt Date: 20090604
  Transmission Date: 20091009
  Serious: Yes (Hospitalization, Other)
  Sender: FDA-Public Use
  Company Number: PAR_03021_2009

PATIENT
  Age: 51 Year
  Sex: Male
  Weight: 87 kg

DRUGS (12)
  1. ONDANSETRON [Suspect]
     Indication: PROPHYLAXIS OF NAUSEA AND VOMITING
     Dosage: (4 MG 2X INTRAVENOUS) (NOT OTHERWISE SPECIFIED))
     Route: 042
  2. GLYCOPYRROLATE /00196202/ [Concomitant]
  3. CEFAZOLIN [Concomitant]
  4. ROCURONIUM BROMIDE [Concomitant]
  5. ISOFLURANE [Concomitant]
  6. PROPOFOL [Concomitant]
  7. FENTANYL [Concomitant]
  8. MIDAZOLAM HCL [Concomitant]
  9. ATORVASTATIN CALCIUM [Concomitant]
  10. MULTI-VITAMINS [Concomitant]
  11. GLUCOSAMINE/CHONDROITIN /01625901/ [Concomitant]
  12. ASPIRIN [Concomitant]

REACTIONS (7)
  - ARTERIOSPASM CORONARY [None]
  - ATRIAL FIBRILLATION [None]
  - CORONARY ARTERY STENOSIS [None]
  - ELECTROCARDIOGRAM ST SEGMENT ELEVATION [None]
  - HYPOTENSION [None]
  - LEFT ATRIAL DILATATION [None]
  - LEFT VENTRICULAR HYPERTROPHY [None]
